FAERS Safety Report 24768350 (Version 3)
Quarter: 2025Q2

REPORT INFORMATION
  Report Type: Spontaneous
  Country: US (occurrence: US)
  Receive Date: 20241223
  Receipt Date: 20250514
  Transmission Date: 20250717
  Serious: Yes (Hospitalization, Other)
  Sender: BRISTOL-MYERS SQUIBB COMPANY
  Company Number: US-BRISTOL-MYERS SQUIBB COMPANY-2024-197641

PATIENT
  Age: 53 Year
  Sex: Female

DRUGS (2)
  1. REVLIMID [Suspect]
     Active Substance: LENALIDOMIDE
     Indication: Plasma cell myeloma
     Dosage: FREQ: QD FOR 21 DAYS
     Route: 048
  2. REVLIMID [Suspect]
     Active Substance: LENALIDOMIDE
     Dosage: FREQ: TAKE 1 CAPSULE BY MOUTH DAILY FOR 21 DAYS ON THEN 7 DAYS OFF
     Route: 048
     Dates: start: 20250318

REACTIONS (8)
  - Upper limb fracture [Unknown]
  - Asthenia [Unknown]
  - Pain [Unknown]
  - Headache [Unknown]
  - Bone pain [Unknown]
  - Fatigue [Unknown]
  - Therapy interrupted [Unknown]
  - Insurance issue [Unknown]
